FAERS Safety Report 14466475 (Version 1)
Quarter: 2018Q1

REPORT INFORMATION
  Report Type: Spontaneous
  Country: FR (occurrence: FR)
  Receive Date: 20180131
  Receipt Date: 20180131
  Transmission Date: 20180509
  Serious: Yes (Hospitalization, Other)
  Sender: FDA-Public Use
  Company Number: FR-VISTAPHARM, INC.-VER201801-000242

PATIENT
  Age: 29 Year
  Sex: Male

DRUGS (2)
  1. METHADONE [Suspect]
     Active Substance: METHADONE HYDROCHLORIDE
     Indication: PRODUCT USED FOR UNKNOWN INDICATION
     Route: 048
  2. CYAMEMAZINE [Concomitant]
     Active Substance: CYAMEMAZINE
     Indication: PRODUCT USED FOR UNKNOWN INDICATION

REACTIONS (8)
  - Acute kidney injury [Not Recovered/Not Resolved]
  - Hyperkalaemia [Recovering/Resolving]
  - Cerebellar syndrome [Not Recovered/Not Resolved]
  - Toxicity to various agents [Recovering/Resolving]
  - Drug dependence [Unknown]
  - Overdose [Unknown]
  - Brain injury [Recovering/Resolving]
  - Crush syndrome [Recovering/Resolving]
